FAERS Safety Report 18510425 (Version 1)
Quarter: 2020Q4

REPORT INFORMATION
  Report Type: Spontaneous
  Country: US (occurrence: US)
  Receive Date: 20201114
  Receipt Date: 20201114
  Transmission Date: 20210114
  Serious: Yes (Other)
  Sender: FDA-Public Use
  Company Number: None

PATIENT
  Age: 35 Year
  Sex: Female
  Weight: 57.6 kg

DRUGS (14)
  1. FLONASE [Concomitant]
     Active Substance: FLUTICASONE PROPIONATE
  2. AMMONIUM LACTATE. [Concomitant]
     Active Substance: AMMONIUM LACTATE
  3. DAILY MULTIVITAMIN [Concomitant]
     Active Substance: VITAMINS
  4. FLORASTOR PROBIOTIC [Concomitant]
  5. EMOLLIENT (DHEA EX) [Concomitant]
  6. BORIC ACID VAGINAL SUPPOSITORY (BORIC/CAPSU) [Suspect]
     Active Substance: BORIC ACID
     Indication: VULVOVAGINAL DISCOMFORT
     Dosage: ?          OTHER STRENGTH:UNKNOWN;QUANTITY:1 CAPSULE(S);?
     Route: 067
     Dates: start: 20201105, end: 20201106
  7. B 12 LIQUID [Concomitant]
  8. GARDEN OF LIFE PROBIOTICS [Concomitant]
  9. NORETHIN-ETH ESTRAD [Concomitant]
  10. BUTYRATE [Concomitant]
  11. UREA CREAM [Concomitant]
     Active Substance: UREA
  12. TRIPHALA [Concomitant]
  13. PREBIOTICS [Concomitant]
  14. VAGINAL PROBIOTIC [Concomitant]

REACTIONS (7)
  - Product contamination [None]
  - Chemical burn of genitalia [None]
  - Vulvovaginal burning sensation [None]
  - Application site pain [None]
  - Vulvovaginal pain [None]
  - Genital pain [None]
  - Pruritus genital [None]

NARRATIVE: CASE EVENT DATE: 20201106
